FAERS Safety Report 19416381 (Version 1)
Quarter: 2021Q2

REPORT INFORMATION
  Report Type: Spontaneous
  Country: CN (occurrence: CN)
  Receive Date: 20210614
  Receipt Date: 20210614
  Transmission Date: 20210717
  Serious: Yes (Other)
  Sender: FDA-Public Use
  Company Number: CN-PFIZER INC-2021635573

PATIENT
  Age: 24 Year
  Sex: Female
  Weight: 86.9 kg

DRUGS (2)
  1. CARBOPROST TROMETAMOL [Suspect]
     Active Substance: CARBOPROST TROMETHAMINE
     Indication: POSTPARTUM HAEMORRHAGE
     Dosage: 1 ML (250UG), 1X/DAY
     Route: 030
     Dates: start: 20210502, end: 20210502
  2. CARBOPROST TROMETAMOL [Suspect]
     Active Substance: CARBOPROST TROMETHAMINE
     Indication: UTERINE HYPOTONUS

REACTIONS (2)
  - Vomiting [Recovered/Resolved]
  - Abdominal pain upper [Recovered/Resolved]

NARRATIVE: CASE EVENT DATE: 20210502
